FAERS Safety Report 5501360-0 (Version None)
Quarter: 2007Q4

REPORT INFORMATION
  Report Type: 
  Country: None (occurrence: None)
  Receive Date: 20071022
  Receipt Date: 20070727
  Transmission Date: 20080405
  Serious: Yes (Other)
  Sender: FDA-Public Use
  Company Number: 159442USA

PATIENT
  Age: 62 Year
  Sex: Female

DRUGS (1)
  1. CLONAZEPAM [Suspect]
     Dates: end: 20070101

REACTIONS (2)
  - DRUG DEPENDENCE [None]
  - DRUG WITHDRAWAL SYNDROME [None]
